FAERS Safety Report 19682864 (Version 2)
Quarter: 2021Q3

REPORT INFORMATION
  Report Type: Report from Study
  Country: FR (occurrence: FR)
  Receive Date: 20210810
  Receipt Date: 20210831
  Transmission Date: 20211014
  Serious: Yes (Hospitalization)
  Sender: FDA-Public Use
  Company Number: FR-ROCHE-2884834

PATIENT
  Age: 62 Year
  Sex: Male

DRUGS (5)
  1. ATEZOLIZUMAB. [Suspect]
     Active Substance: ATEZOLIZUMAB
     Indication: CLEAR CELL RENAL CELL CARCINOMA
     Dosage: ATEZOLIZUMAB IV 1200 MG ON 12?JUL?2021 FOR A CUMULATIVE DOSE OF 3600 MG.
     Route: 041
     Dates: start: 20210531, end: 20210712
  2. RUCAPARIB [Suspect]
     Active Substance: RUCAPARIB
     Indication: CLEAR CELL RENAL CELL CARCINOMA
     Route: 048
     Dates: start: 20210511
  3. LEVOTHYROX [Concomitant]
     Active Substance: LEVOTHYROXINE
  4. COAPROVEL [Concomitant]
     Active Substance: HYDROCHLOROTHIAZIDE\IRBESARTAN
     Dosage: 150/12,5MG
  5. SEROPLEX [Concomitant]
     Active Substance: ESCITALOPRAM OXALATE

REACTIONS (1)
  - Pleurisy [Recovered/Resolved]

NARRATIVE: CASE EVENT DATE: 20210730
